FAERS Safety Report 13496449 (Version 1)
Quarter: 2017Q2

REPORT INFORMATION
  Report Type: Spontaneous
  Country: US (occurrence: US)
  Receive Date: 20170428
  Receipt Date: 20170428
  Transmission Date: 20170830
  Serious: No
  Sender: FDA-Public Use
  Company Number: None

PATIENT
  Age: 40 Year
  Sex: Female
  Weight: 88.08 kg

DRUGS (4)
  1. BIRTH CONTROL PILLS [Concomitant]
     Active Substance: UNSPECIFIED INGREDIENT
  2. BIOTIN [Concomitant]
     Active Substance: BIOTIN
  3. NEXPLANON [Suspect]
     Active Substance: ETONOGESTREL
  4. ONE A DAY WOMAN DAILY VITAMINS [Concomitant]

REACTIONS (7)
  - Abdominal pain [None]
  - Pain [None]
  - Scar [None]
  - Alopecia [None]
  - Depressed mood [None]
  - Pain in extremity [None]
  - Menorrhagia [None]

NARRATIVE: CASE EVENT DATE: 20160608
